FAERS Safety Report 22128945 (Version 3)
Quarter: 2025Q2

REPORT INFORMATION
  Report Type: Report from Study
  Country: US (occurrence: US)
  Receive Date: 20230323
  Receipt Date: 20250420
  Transmission Date: 20250717
  Serious: Yes (Hospitalization, Other)
  Sender: ROCHE
  Company Number: US-ROCHE-3313083

PATIENT
  Age: 69 Year
  Sex: Female

DRUGS (2)
  1. COTELLIC [Suspect]
     Active Substance: COBIMETINIB FUMARATE
     Indication: Metastases to lung
     Dosage: 3 TABLETS DAILY FOR 21 DAYS WITHHOLD FOR 7 DAYS, THEN REPEAT CYCLE
     Route: 048
     Dates: start: 20230314
  2. ZELBORAF [Suspect]
     Active Substance: VEMURAFENIB
     Indication: Metastases to lung
     Dosage: 4 TABLETS 2 TIMES A DAY
     Route: 048
     Dates: start: 20230314

REACTIONS (7)
  - Off label use [Unknown]
  - Off label use [Unknown]
  - Lung cancer metastatic [Unknown]
  - Dehydration [Unknown]
  - Hypotension [Unknown]
  - Urinary tract infection [Unknown]
  - Skin discolouration [Unknown]

NARRATIVE: CASE EVENT DATE: 20230314
